FAERS Safety Report 23172523 (Version 1)
Quarter: 2023Q4

REPORT INFORMATION
  Report Type: Spontaneous
  Country: GB (occurrence: GB)
  Receive Date: 20231110
  Receipt Date: 20231110
  Transmission Date: 20240110
  Serious: Yes (Other)
  Sender: FDA-Public Use
  Company Number: GB-009507513-2311GBR002984

PATIENT
  Age: 68 Year
  Sex: Female
  Weight: 94.4 kg

DRUGS (5)
  1. SITAGLIPTIN PHOSPHATE [Suspect]
     Active Substance: SITAGLIPTIN PHOSPHATE
     Dosage: ONE TO BE TAKEN EACH DAY
     Dates: start: 20231017
  2. INFLUENZA VIRUS VACCINE QUADRIVALENT TYPE A+B [Concomitant]
     Active Substance: INFLUENZA VIRUS VACCINE QUADRIVALENT TYPE A+B
     Indication: Hiatus hernia
     Dosage: AS DIRECTED
     Dates: start: 20231024, end: 20231024
  3. UMECLIDINIUM BROMIDE\VILANTEROL TRIFENATATE [Concomitant]
     Active Substance: UMECLIDINIUM BROMIDE\VILANTEROL TRIFENATATE
     Indication: Chronic obstructive pulmonary disease
     Dosage: ONE DOSE TO BE INHALED EACH DAY
     Dates: start: 20231026, end: 20231101
  4. CLARITHROMYCIN [Concomitant]
     Active Substance: CLARITHROMYCIN
     Indication: Chronic obstructive pulmonary disease
     Dosage: ONE TO BE TAKEN TWICE A DAY
     Dates: start: 20230906
  5. OLODATEROL HYDROCHLORIDE\TIOTROPIUM BROMIDE MONOHYDRATE [Concomitant]
     Active Substance: OLODATEROL HYDROCHLORIDE\TIOTROPIUM BROMIDE MONOHYDRATE
     Indication: Chronic obstructive pulmonary disease
     Dosage: TWO PUFFS TO BE INHALED EACH DAY
     Dates: start: 20231017, end: 20231026

REACTIONS (2)
  - Dysphagia [Recovered/Resolved]
  - Sensation of foreign body [Unknown]
